FAERS Safety Report 4917702-0 (Version None)
Quarter: 2006Q1

REPORT INFORMATION
  Report Type: 
  Country: None (occurrence: None)
  Receive Date: 20060221
  Receipt Date: 20051219
  Transmission Date: 20060701
  Serious: Yes (Hospitalization)
  Sender: FDA-Public Use
  Company Number: US-ROCHE-429432

PATIENT
  Age: 41 Year
  Sex: Female

DRUGS (6)
  1. PEGASYS [Suspect]
     Dosage: SUSPENDED.
     Route: 058
     Dates: start: 20050811, end: 20051202
  2. COPEGUS [Suspect]
     Dosage: SUSPENDED.
     Route: 048
     Dates: start: 20050811, end: 20051202
  3. NORVASC [Concomitant]
     Indication: HYPERTENSION
     Route: 048
  4. ZOLOFT [Concomitant]
     Indication: DEPRESSION
     Dosage: ADMINISTERED IN A.M.
     Route: 048
  5. PREVACID [Concomitant]
  6. TRAZODONE [Concomitant]

REACTIONS (12)
  - ALOPECIA [None]
  - CONTUSION [None]
  - COUGH [None]
  - DEPRESSION [None]
  - EPISTAXIS [None]
  - HAEMOPTYSIS [None]
  - HAEMORRHAGE [None]
  - HYPOKALAEMIA [None]
  - NAUSEA [None]
  - PANCYTOPENIA [None]
  - PHARYNGOLARYNGEAL PAIN [None]
  - THROMBOCYTOPENIA [None]
